FAERS Safety Report 7297715-7 (Version None)
Quarter: 2011Q1

REPORT INFORMATION
  Report Type: 
  Country: None (occurrence: None)
  Receive Date: 20110217
  Receipt Date: 20110208
  Transmission Date: 20110831
  Serious: Yes (Hospitalization)
  Sender: FDA-Public Use
  Company Number: US-US-EMD SERONO, INC.-7041246

PATIENT
  Sex: Female

DRUGS (4)
  1. AMITRIPTYLINE [Concomitant]
  2. BLOOD PRESSURE PILLS [Concomitant]
  3. REBIF [Suspect]
     Indication: MULTIPLE SCLEROSIS
     Route: 058
     Dates: start: 20030317
  4. NEURONTIN [Concomitant]

REACTIONS (4)
  - UPPER LIMB FRACTURE [None]
  - WRIST FRACTURE [None]
  - FALL [None]
  - MOTOR DYSFUNCTION [None]
